FAERS Safety Report 6623976-0 (Version None)
Quarter: 2010Q1

REPORT INFORMATION
  Report Type: 
  Country: None (occurrence: None)
  Receive Date: 20100310
  Receipt Date: 20100225
  Transmission Date: 20100710
  Serious: Yes (Other)
  Sender: FDA-Public Use
  Company Number: US-PFIZER INC-2009208702

PATIENT
  Sex: Female
  Weight: 81.646 kg

DRUGS (5)
  1. MEDROL [Suspect]
     Indication: JOINT INJURY
     Dosage: 2 MG, 1X/DAY
     Dates: start: 20020101, end: 20100211
  2. MEDROL [Suspect]
     Indication: FLUID RETENTION
  3. CARDIZEM [Concomitant]
     Dosage: UNK
  4. VITAMINS [Concomitant]
  5. ASPIRIN [Concomitant]

REACTIONS (8)
  - ABDOMINAL PAIN UPPER [None]
  - BLOOD PRESSURE INCREASED [None]
  - CARDIAC DISORDER [None]
  - DYSGEUSIA [None]
  - INSOMNIA [None]
  - JOINT SWELLING [None]
  - LIMB INJURY [None]
  - REGURGITATION [None]
